FAERS Safety Report 12206533 (Version 4)
Quarter: 2016Q2

REPORT INFORMATION
  Report Type: Spontaneous
  Country: US (occurrence: US)
  Receive Date: 20160324
  Receipt Date: 20160531
  Transmission Date: 20160815
  Serious: No
  Sender: FDA-Public Use
  Company Number: US-PFIZER INC-2016162454

PATIENT
  Age: 7 Year
  Sex: Female
  Weight: 23 kg

DRUGS (3)
  1. LEVOTHYROXINE. [Concomitant]
     Active Substance: LEVOTHYROXINE
     Indication: THYROID DISORDER
     Dosage: 25 UG, UNK
  2. GENOTROPIN [Suspect]
     Active Substance: SOMATROPIN
     Indication: DWARFISM
     Dosage: 1.2 MG, UNK
     Dates: end: 20160312
  3. GENOTROPIN [Suspect]
     Active Substance: SOMATROPIN
     Indication: DWARFISM
     Dosage: 1.2 MG, UNK
     Dates: start: 20160311

REACTIONS (3)
  - Poor quality drug administered [Unknown]
  - Product odour abnormal [Unknown]
  - Product physical issue [Unknown]
